FAERS Safety Report 6021921-2 (Version None)
Quarter: 2008Q4

REPORT INFORMATION
  Report Type: 
  Country: None (occurrence: None)
  Receive Date: 20081229
  Receipt Date: 20081217
  Transmission Date: 20090506
  Serious: Yes (Death)
  Sender: FDA-Public Use
  Company Number: GB-ROCHE-603984

PATIENT
  Age: 43 Year
  Sex: Female

DRUGS (6)
  1. MYCOPHENOLATE MOFETIL [Suspect]
     Indication: IMMUNOSUPPRESSION
     Dosage: ROUTE AND DOSAGE UNSPECIFIED.
     Route: 065
  2. RITUXIMAB [Suspect]
     Indication: NEUROMYELITIS OPTICA
     Dosage: ROUTE AND DOSAGE UNSPECIFIED.
     Route: 065
  3. AZATHIOPRINE [Suspect]
     Indication: IMMUNOSUPPRESSION
     Dosage: ROUTE AND DOSAGE UNSPECIFIED.
     Route: 065
  4. PREDNISONE [Suspect]
     Indication: IMMUNOSUPPRESSION
     Dosage: ROUTE AND DOSAGE UNSPECIFIED.
     Route: 065
  5. MITOXANTRONE [Suspect]
     Indication: IMMUNOSUPPRESSION
     Dosage: ROUTE AND DOSAGE UNSPECIFIED.
     Route: 065
  6. CYCLOPHOSPHAMIDE [Suspect]
     Indication: IMMUNOSUPPRESSION
     Dosage: ROUTE AND DOSAGE UNSPECIFIED.
     Route: 065

REACTIONS (4)
  - CLOSTRIDIUM DIFFICILE COLITIS [None]
  - DISEASE RECURRENCE [None]
  - NEUROMYELITIS OPTICA [None]
  - URINARY TRACT INFECTION [None]
